FAERS Safety Report 5046666-7 (Version None)
Quarter: 2006Q3

REPORT INFORMATION
  Report Type: 
  Country: None (occurrence: None)
  Receive Date: 20060710
  Receipt Date: 20060629
  Transmission Date: 20061208
  Serious: Yes (Hospitalization)
  Sender: FDA-Public Use
  Company Number: AU-BRISTOL-MYERS SQUIBB COMPANY-13430947

PATIENT
  Age: 44 Year
  Sex: Female

DRUGS (3)
  1. SINEMET [Suspect]
     Indication: PARKINSON'S DISEASE
     Route: 048
  2. LAMISIL [Concomitant]
     Dates: end: 20060615
  3. AROPAX [Concomitant]

REACTIONS (7)
  - BLOOD PRESSURE AMBULATORY DECREASED [None]
  - DIZZINESS [None]
  - PARTIAL SEIZURES [None]
  - PHOTOPSIA [None]
  - POSTURAL ORTHOSTATIC TACHYCARDIA SYNDROME [None]
  - SYNCOPE [None]
  - TINNITUS [None]
